FAERS Safety Report 9709659 (Version 1)
Quarter: 2013Q4

REPORT INFORMATION
  Report Type: Spontaneous
  Country: CZ (occurrence: CZ)
  Receive Date: 20131126
  Receipt Date: 20131126
  Transmission Date: 20140711
  Serious: Yes (Other)
  Sender: FDA-Public Use
  Company Number: PHHY2013CZ135525

PATIENT
  Sex: Female

DRUGS (32)
  1. LETROZOLE [Suspect]
     Indication: BREAST CANCER METASTATIC
  2. LETROZOLE [Suspect]
     Indication: METASTASES TO LIVER
  3. LETROZOLE [Suspect]
     Indication: INVASIVE DUCTAL BREAST CARCINOMA
  4. ZOLEDRONATE [Suspect]
     Indication: BREAST CANCER METASTATIC
     Route: 042
  5. ZOLEDRONATE [Suspect]
     Indication: METASTASES TO LIVER
  6. ZOLEDRONATE [Suspect]
     Indication: INVASIVE DUCTAL BREAST CARCINOMA
  7. DOCETAXEL [Suspect]
     Indication: BREAST CANCER METASTATIC
     Dosage: 75 MG/M2, EVERY THREE WEEKS
     Dates: start: 200703, end: 200707
  8. DOCETAXEL [Suspect]
     Indication: METASTASES TO LIVER
     Dosage: 75 MG/M2, EVERY THREE WEEKS
     Dates: start: 201301, end: 201307
  9. DOCETAXEL [Suspect]
     Indication: INVASIVE DUCTAL BREAST CARCINOMA
  10. CAPECITABINE [Suspect]
     Indication: BREAST CANCER METASTATIC
     Dosage: 2500 MG/M2
     Dates: start: 200708
  11. CAPECITABINE [Suspect]
     Indication: METASTASES TO LIVER
  12. CAPECITABINE [Suspect]
     Indication: INVASIVE DUCTAL BREAST CARCINOMA
  13. VINORELBINE [Suspect]
     Indication: BREAST CANCER METASTATIC
     Dosage: 25 MG/M2
  14. VINORELBINE [Suspect]
     Indication: METASTASES TO LIVER
  15. VINORELBINE [Suspect]
     Indication: INVASIVE DUCTAL BREAST CARCINOMA
  16. DOXORUBICIN [Suspect]
     Indication: BREAST CANCER METASTATIC
     Dosage: 50 MG/M2
     Dates: start: 200001
  17. DOXORUBICIN [Suspect]
     Indication: METASTASES TO LIVER
  18. DOXORUBICIN [Suspect]
     Indication: INVASIVE DUCTAL BREAST CARCINOMA
  19. TAMOXIFEN [Suspect]
     Indication: BREAST CANCER METASTATIC
     Dates: start: 200009
  20. TAMOXIFEN [Suspect]
     Indication: METASTASES TO LIVER
  21. TAMOXIFEN [Suspect]
     Indication: INVASIVE DUCTAL BREAST CARCINOMA
  22. VINBLASTINE [Suspect]
     Indication: BREAST CANCER METASTATIC
     Dosage: 25 MG/M2
  23. VINBLASTINE [Suspect]
     Indication: METASTASES TO LIVER
  24. VINBLASTINE [Suspect]
     Indication: INVASIVE DUCTAL BREAST CARCINOMA
  25. 5-FLUOROURACIL [Suspect]
     Indication: BREAST CANCER METASTATIC
  26. 5-FLUOROURACIL [Suspect]
     Indication: METASTASES TO LIVER
  27. 5-FLUOROURACIL [Suspect]
     Indication: INVASIVE DUCTAL BREAST CARCINOMA
  28. FASLODEX [Suspect]
     Indication: BREAST CANCER METASTATIC
     Dates: start: 201012
  29. FASLODEX [Suspect]
     Indication: METASTASES TO LIVER
  30. FASLODEX [Suspect]
     Indication: INVASIVE DUCTAL BREAST CARCINOMA
  31. TAXOL [Suspect]
     Indication: METASTASES TO LIVER
  32. TAXOL [Suspect]
     Indication: INVASIVE DUCTAL BREAST CARCINOMA

REACTIONS (7)
  - Breast cancer metastatic [Unknown]
  - Malignant neoplasm progression [Unknown]
  - Mucosal inflammation [Unknown]
  - Blood disorder [Unknown]
  - Toxicity to various agents [Unknown]
  - Osteolysis [Unknown]
  - Bone lesion [Unknown]
